FAERS Safety Report 6730885-5 (Version None)
Quarter: 2010Q2

REPORT INFORMATION
  Report Type: 
  Country: None (occurrence: None)
  Receive Date: 20100518
  Receipt Date: 20100505
  Transmission Date: 20101027
  Serious: Yes (Hospitalization, Other)
  Sender: FDA-Public Use
  Company Number: PHHY2010US29123

PATIENT
  Age: 61 Year
  Sex: Female
  Weight: 49.342 kg

DRUGS (17)
  1. LOPRESSOR [Suspect]
     Dosage: 100 MG, BID
     Dates: start: 20040801
  2. LOPRESSOR [Suspect]
     Dosage: 50 MG, BID
     Dates: start: 20040801
  3. CELECOXIB [Suspect]
     Dosage: UNK
     Dates: start: 20070822
  4. IBUPROFEN [Suspect]
     Dosage: UNK
  5. NAPROXEN [Suspect]
  6. ESOMEPRAZOLE [Concomitant]
     Dosage: UNK
     Dates: start: 20070701
  7. AMLODIPINE BESYLATE [Concomitant]
     Dosage: UNK
     Dates: start: 20040101
  8. METOPROLOL TARTRATE [Concomitant]
     Dosage: 100 MG, BID
     Dates: start: 20040801
  9. METOPROLOL TARTRATE [Concomitant]
     Dosage: 50 MG, BID
  10. LISINOPRIL [Concomitant]
     Dosage: UNK
     Dates: start: 20070701
  11. SIMVASTATIN [Concomitant]
     Dosage: UNK
     Dates: start: 20070701
  12. ACETYLSALICYLIC ACID [Concomitant]
     Dosage: UNK
     Dates: start: 20040101
  13. HYDROCHLOROTHIAZIDE [Concomitant]
     Indication: HYPERTENSION
     Dosage: 12.5 MG
     Route: 048
     Dates: start: 20100310
  14. NEXIUM [Concomitant]
     Dosage: UNK
     Dates: start: 20070822
  15. NORVASC [Concomitant]
     Dosage: 01-JAN-2004
  16. PRINIVIL [Concomitant]
     Dosage: UNK
     Dates: start: 20070701
  17. ZOCOR [Concomitant]
     Dosage: UNK
     Dates: start: 20070707

REACTIONS (5)
  - ALTERED STATE OF CONSCIOUSNESS [None]
  - CHEST PAIN [None]
  - DIZZINESS [None]
  - NAUSEA [None]
  - SYNCOPE [None]
